FAERS Safety Report 7284821-6 (Version None)
Quarter: 2011Q1

REPORT INFORMATION
  Report Type: 
  Country: None (occurrence: None)
  Receive Date: 20110210
  Receipt Date: 20110204
  Transmission Date: 20110831
  Serious: No
  Sender: FDA-Public Use
  Company Number: US-PFIZER INC-2010076392

PATIENT
  Sex: Female
  Weight: 77.098 kg

DRUGS (2)
  1. XALATAN [Suspect]
     Indication: GLAUCOMA
     Dosage: ONE DROP IN EACH EYE
     Route: 047
     Dates: start: 20100101
  2. NEXIUM [Concomitant]
     Dosage: DAILY

REACTIONS (3)
  - DRY EYE [None]
  - EYE PAIN [None]
  - OCULAR HYPERAEMIA [None]
